FAERS Safety Report 7355394-4 (Version None)
Quarter: 2011Q1

REPORT INFORMATION
  Report Type: 
  Country: None (occurrence: None)
  Receive Date: 20110316
  Receipt Date: 20110315
  Transmission Date: 20110831
  Serious: No
  Sender: FDA-Public Use
  Company Number: US-TEVA-271403USA

PATIENT
  Sex: Female
  Weight: 45.4 kg

DRUGS (4)
  1. PLAN B ONE-STEP [Suspect]
     Route: 048
  2. UNKNOWN [Concomitant]
     Indication: ANXIETY
     Route: 048
  3. PLAN B ONE-STEP [Suspect]
     Route: 048
     Dates: start: 20110308, end: 20110308
  4. PLAN B ONE-STEP [Suspect]
     Indication: POST COITAL CONTRACEPTION
     Route: 048

REACTIONS (4)
  - DRUG INEFFECTIVE [None]
  - NAUSEA [None]
  - PREGNANCY AFTER POST COITAL CONTRACEPTION [None]
  - MENSTRUATION IRREGULAR [None]
